FAERS Safety Report 23864787 (Version 1)
Quarter: 2024Q2

REPORT INFORMATION
  Report Type: Spontaneous
  Country: US (occurrence: US)
  Receive Date: 20240516
  Receipt Date: 20240516
  Transmission Date: 20240716
  Serious: No
  Sender: FDA-Public Use
  Company Number: US-NEUROCRINE BIOSCIENCES INC.-2024NBI04207

PATIENT

DRUGS (2)
  1. INGREZZA [Suspect]
     Active Substance: VALBENAZINE
     Indication: Product used for unknown indication
     Dosage: 100 MILLIGRAM (60 MILLIGRAM IN THE MORNING AND 40 MILLIGRAM AT NIGHT), QD
     Route: 065
  2. INGREZZA [Suspect]
     Active Substance: VALBENAZINE
     Dosage: UNK, STANDARD DOSE
     Route: 065

REACTIONS (2)
  - Drug ineffective [Unknown]
  - Prescribed overdose [Unknown]
